FAERS Safety Report 21963133 (Version 4)
Quarter: 2023Q1

REPORT INFORMATION
  Report Type: Report from Study
  Country: US (occurrence: US)
  Receive Date: 20230207
  Receipt Date: 20230313
  Transmission Date: 20230418
  Serious: Yes (Hospitalization)
  Sender: FDA-Public Use
  Company Number: US-AMRYT PHARMACEUTICALS DAC-AEGR006206

PATIENT
  Age: 49 Year
  Sex: Male

DRUGS (2)
  1. MYALEPT [Suspect]
     Active Substance: METRELEPTIN
     Indication: Lipodystrophy acquired
     Dosage: 5 MILLIGRAM, QD
     Route: 058
     Dates: start: 20221015
  2. BACTERIOSTATIC WATER [Concomitant]
     Active Substance: WATER
     Indication: Product used for unknown indication
     Dosage: UNK
     Dates: start: 20221015

REACTIONS (5)
  - Skin ulcer [Unknown]
  - Localised infection [Unknown]
  - Eye ulcer [Unknown]
  - Lagophthalmos [Unknown]
  - Dizziness [Unknown]

NARRATIVE: CASE EVENT DATE: 20230211
